FAERS Safety Report 4423300-8 (Version None)
Quarter: 2004Q3

REPORT INFORMATION
  Report Type: 
  Country: None (occurrence: None)
  Receive Date: 20040811
  Receipt Date: 20040804
  Transmission Date: 20050211
  Serious: Yes (Other)
  Sender: FDA-Public Use
  Company Number: JPKYO-S-20030057

PATIENT
  Age: 60 Year
  Sex: Male

DRUGS (2)
  1. NAVELBINE [Suspect]
     Dosage: 10MG SEE DOSAGE TEXT
     Route: 042
     Dates: start: 20021021, end: 20030804
  2. GEMZAR [Suspect]
     Dosage: 1000MG SEE DOSAGE TEXT
     Route: 042
     Dates: end: 20030804

REACTIONS (2)
  - CARDIAC FAILURE [None]
  - RECURRENT CANCER [None]
